FAERS Safety Report 6870556-8 (Version None)
Quarter: 2010Q3

REPORT INFORMATION
  Report Type: 
  Country: None (occurrence: None)
  Receive Date: 20100723
  Receipt Date: 20100712
  Transmission Date: 20110219
  Serious: Yes (Hospitalization)
  Sender: FDA-Public Use
  Company Number: ES-ELI_LILLY_AND_COMPANY-ES201007004480

PATIENT
  Sex: Female
  Weight: 63 kg

DRUGS (9)
  1. FORTEO [Suspect]
     Indication: OSTEOPOROSIS
     Dosage: 20 UG, DAILY (1/D)
     Route: 058
  2. ASPIRIN [Concomitant]
     Dosage: 300 MG, DAILY (1/D)
     Route: 048
  3. OMEPRAZOLE [Concomitant]
     Indication: PROPHYLAXIS
     Dosage: 20 MG, DAILY (1/D)
     Route: 048
  4. EFFERALGAN                         /00020001/ [Concomitant]
     Indication: PAIN
     Dosage: 500 MG, AS NEEDED
     Route: 048
  5. LORAZEPAM [Concomitant]
     Indication: SEDATIVE THERAPY
     Dosage: UNK, DAILY (1/D)
     Route: 048
  6. ACETAMINOPHEN [Concomitant]
     Indication: PAIN
     Dosage: 5 MG, DAILY (1/D)
     Route: 048
  7. URAPLEX [Concomitant]
     Indication: INCONTINENCE
     Dosage: UNK, DAILY (1/D)
     Route: 048
  8. PARAPRES [Concomitant]
     Dosage: 16 MG, DAILY (1/D)
     Route: 048
  9. PACATAL [Concomitant]
     Indication: PAIN
     Dosage: UNK, DAILY (1/D)
     Route: 048

REACTIONS (2)
  - DIZZINESS [None]
  - LOSS OF CONSCIOUSNESS [None]
